FAERS Safety Report 6196089-2 (Version None)
Quarter: 2009Q2

REPORT INFORMATION
  Report Type: 
  Country: None (occurrence: None)
  Receive Date: 20090520
  Receipt Date: 20090514
  Transmission Date: 20091009
  Serious: Yes (Other)
  Sender: FDA-Public Use
  Company Number: US-JNJFOC-20090503661

PATIENT
  Sex: Female
  Weight: 46.27 kg

DRUGS (1)
  1. LEVAQUIN [Suspect]
     Indication: CYSTITIS
     Route: 065

REACTIONS (7)
  - ABASIA [None]
  - ANAEMIA [None]
  - CONVULSION [None]
  - DELIRIUM [None]
  - EXPRESSIVE LANGUAGE DISORDER [None]
  - JOINT SWELLING [None]
  - PYREXIA [None]
